FAERS Safety Report 11751276 (Version 1)
Quarter: 2015Q4

REPORT INFORMATION
  Report Type: Other
  Country: US (occurrence: US)
  Receive Date: 20151118
  Receipt Date: 20151118
  Transmission Date: 20160304
  Serious: Yes (Other)
  Sender: FDA-Public Use
  Company Number: US-SHIRE-US201513975

PATIENT
  Age: 59 Year
  Sex: Male

DRUGS (1)
  1. CINRYZE [Suspect]
     Active Substance: HUMAN C1-ESTERASE INHIBITOR
     Indication: PRODUCT USED FOR UNKNOWN INDICATION
     Dosage: 2500 UNITS, OTHER (TWICE A WEEK)
     Route: 042
     Dates: start: 201401

REACTIONS (3)
  - Prescribed overdose [Not Recovered/Not Resolved]
  - Pharyngeal oedema [Recovered/Resolved]
  - Localised oedema [Recovered/Resolved]

NARRATIVE: CASE EVENT DATE: 201401
